FAERS Safety Report 11428101 (Version 1)
Quarter: 2015Q3

REPORT INFORMATION
  Report Type: Spontaneous
  Country: US (occurrence: US)
  Receive Date: 20150828
  Receipt Date: 20150828
  Transmission Date: 20151125
  Serious: No
  Sender: FDA-Public Use
  Company Number: US-ROCHE-1266178

PATIENT
  Sex: Male

DRUGS (2)
  1. RIBAVIRIN. [Suspect]
     Active Substance: RIBAVIRIN
     Indication: HEPATITIS C
     Dosage: IN DIVIDED DOSES
     Route: 048
     Dates: start: 20130804
  2. PEGASYS [Suspect]
     Active Substance: PEGINTERFERON ALFA-2A
     Indication: HEPATITIS C
     Route: 058
     Dates: start: 20130814

REACTIONS (10)
  - Pyrexia [Unknown]
  - Abdominal pain lower [Unknown]
  - Flatulence [Unknown]
  - Fatigue [Unknown]
  - Sensory disturbance [Unknown]
  - Chromaturia [Unknown]
  - Diarrhoea [Unknown]
  - Asthenia [Unknown]
  - Dysgeusia [Unknown]
  - Weight decreased [Unknown]
